FAERS Safety Report 7311906-8 (Version None)
Quarter: 2011Q1

REPORT INFORMATION
  Report Type: 
  Country: None (occurrence: None)
  Receive Date: 20110224
  Receipt Date: 20110222
  Transmission Date: 20110831
  Serious: No
  Sender: FDA-Public Use
  Company Number: US-TEVA-267348USA

PATIENT
  Sex: Female
  Weight: 59.02 kg

DRUGS (3)
  1. PLAN B ONE-STEP [Suspect]
     Indication: POST COITAL CONTRACEPTION
     Route: 048
     Dates: start: 20110128, end: 20110128
  2. ANTIBIOTIC [Concomitant]
     Indication: URINARY TRACT INFECTION
  3. CITALOPRAM [Concomitant]
     Indication: DEPRESSION

REACTIONS (3)
  - BREAST TENDERNESS [None]
  - ABDOMINAL DISTENSION [None]
  - PELVIC PAIN [None]
